APPROVED DRUG PRODUCT: ATOVAQUONE
Active Ingredient: ATOVAQUONE
Strength: 750MG/5ML
Dosage Form/Route: SUSPENSION;ORAL
Application: A214272 | Product #001 | TE Code: AB
Applicant: PAI HOLDINGS LLC DBA PHARMACEUTICAL ASSOCIATES INC AND DBA PAI PHARMA
Approved: Oct 25, 2021 | RLD: No | RS: No | Type: RX